FAERS Safety Report 15696123 (Version 1)
Quarter: 2018Q4

REPORT INFORMATION
  Report Type: Spontaneous
  Country: US (occurrence: US)
  Receive Date: 20181206
  Receipt Date: 20181206
  Transmission Date: 20190205
  Serious: No
  Sender: FDA-Public Use
  Company Number: US-BAYER-2018-225305

PATIENT
  Age: 60 Year
  Sex: Male

DRUGS (4)
  1. CLARITIN [Suspect]
     Active Substance: LORATADINE
     Indication: NASAL CONGESTION
     Dosage: 2 DF, PRN
     Dates: start: 20181203
  2. CHOLESTEROL [Concomitant]
     Active Substance: CHOLESTEROL
  3. MUCINEX [Concomitant]
     Active Substance: GUAIFENESIN
     Indication: HYPERSENSITIVITY
     Dosage: UNK
  4. MUCINEX [Concomitant]
     Active Substance: GUAIFENESIN
     Indication: NASOPHARYNGITIS

REACTIONS (2)
  - Product use in unapproved indication [None]
  - Incorrect dosage administered [Recovered/Resolved]

NARRATIVE: CASE EVENT DATE: 20181203
